FAERS Safety Report 22037512 (Version 1)
Quarter: 2023Q1

REPORT INFORMATION
  Report Type: Report from Study
  Country: US (occurrence: US)
  Receive Date: 20230227
  Receipt Date: 20230227
  Transmission Date: 20230417
  Serious: Yes (Hospitalization, Other)
  Sender: FDA-Public Use
  Company Number: US-ABBVIE-4313744

PATIENT
  Sex: Male

DRUGS (14)
  1. IMBRUVICA [Suspect]
     Active Substance: IBRUTINIB
     Indication: Mantle cell lymphoma
     Route: 048
     Dates: start: 20230207, end: 20230214
  2. Zofran Oral Tablet 8 MG [Concomitant]
     Indication: Product used for unknown indication
  3. Prochlorperazine Maleate Oral Table [Concomitant]
     Indication: Product used for unknown indication
  4. Sulfamethoxazole-Trimethoprim Oral [Concomitant]
     Indication: Product used for unknown indication
  5. Colace Oral Capsule 100 MG [Concomitant]
     Indication: Product used for unknown indication
  6. ACYCLOVIR [Concomitant]
     Active Substance: ACYCLOVIR
     Indication: Product used for unknown indication
  7. Senokot Oral Tablet 8.6 MG [Concomitant]
     Indication: Product used for unknown indication
  8. Allopurinol Oral Tablet 100 MG [Concomitant]
     Indication: Product used for unknown indication
  9. Ferrous Sulfate Oral Tablet 325 (65 [Concomitant]
     Indication: Product used for unknown indication
  10. Pantoprazole Sodium Oral Tablet Del [Concomitant]
     Indication: Product used for unknown indication
  11. Lantus Subcutaneous Solution 100 UN [Concomitant]
     Indication: Product used for unknown indication
  12. TESSALON [Concomitant]
     Active Substance: BENZONATATE
     Indication: Product used for unknown indication
  13. OMEGA 3 [Concomitant]
     Active Substance: CAPSAICIN
     Indication: Product used for unknown indication
  14. METFORMIN HCL. [Concomitant]
     Indication: Product used for unknown indication

REACTIONS (3)
  - Transfusion [Unknown]
  - Anaemia [Recovering/Resolving]
  - Pneumonia [Recovering/Resolving]
